APPROVED DRUG PRODUCT: CLOTRIMAZOLE
Active Ingredient: CLOTRIMAZOLE
Strength: 10MG
Dosage Form/Route: TROCHE/LOZENGE;ORAL
Application: A215641 | Product #001 | TE Code: AB
Applicant: THINQ PHARMA-CRO PRIVATE LTD
Approved: Feb 29, 2024 | RLD: No | RS: No | Type: RX